FAERS Safety Report 19687960 (Version 2)
Quarter: 2021Q3

REPORT INFORMATION
  Report Type: Spontaneous
  Country: JP (occurrence: JP)
  Receive Date: 20210812
  Receipt Date: 20210827
  Transmission Date: 20211014
  Serious: Yes (Hospitalization, Other)
  Sender: FDA-Public Use
  Company Number: JP-TAKEDA-2021TJP069027

PATIENT
  Age: 42 Year
  Sex: Female

DRUGS (3)
  1. ANAMORELIN HYDROCHLORIDE. [Concomitant]
     Active Substance: ANAMORELIN HYDROCHLORIDE
     Dosage: UNK
     Route: 065
  2. OPSO [Concomitant]
     Active Substance: MORPHINE HYDROCHLORIDE
     Dosage: UNK
     Route: 065
  3. ALUNBRIG [Suspect]
     Active Substance: BRIGATINIB
     Indication: NON-SMALL CELL LUNG CANCER
     Dosage: 180 MILLIGRAM
     Route: 048
     Dates: start: 20210428

REACTIONS (4)
  - Hepatic function abnormal [Unknown]
  - Rash [Recovered/Resolved]
  - Non-small cell lung cancer [Unknown]
  - Pleural effusion [Recovered/Resolved]

NARRATIVE: CASE EVENT DATE: 202105
